FAERS Safety Report 6588323-1 (Version None)
Quarter: 2010Q1

REPORT INFORMATION
  Report Type: 
  Country: None (occurrence: None)
  Receive Date: 20100217
  Receipt Date: 20100217
  Transmission Date: 20100710
  Serious: Yes (Life-Threatening, Hospitalization, Disabling)
  Sender: FDA-Public Use
  Company Number: None

PATIENT
  Age: 55 Year
  Sex: Male
  Weight: 77 kg

DRUGS (1)
  1. ENOXAPARIN SODIUM [Suspect]
     Indication: PULMONARY EMBOLISM
     Dosage: 120 MG EVERY DAY SQ
     Route: 058
     Dates: start: 20091201, end: 20091210

REACTIONS (5)
  - ACTIVITIES OF DAILY LIVING IMPAIRED [None]
  - ASTHENIA [None]
  - DECREASED APPETITE [None]
  - HAEMORRHAGE INTRACRANIAL [None]
  - SUBDURAL HAEMATOMA [None]
